FAERS Safety Report 8607328 (Version 4)
Quarter: 2012Q4

REPORT INFORMATION
  Report Type: 
  Country: US (occurrence: US)
  Receive Date: 20120611
  Receipt Date: 20121220
  Transmission Date: 20130627
  Serious: Yes (Hospitalization)
  Sender: FDA-Public Use
  Company Number: US-BAYER-2012-056098

PATIENT
  Age: 41 Year
  Sex: Female
  Weight: 109 kg

DRUGS (12)
  1. YAZ [Suspect]
     Indication: CONTRACEPTION
     Dosage: UNK
     Dates: start: 20091221, end: 20100123
  2. SYNTHROID [Concomitant]
     Indication: HYPERTHYROIDISM
     Dosage: UNK
     Dates: start: 2004
  3. SERTRALINE [Concomitant]
     Indication: DEPRESSION
     Dosage: UNK
     Dates: start: 2009, end: 2011
  4. ERRIN [Concomitant]
     Indication: BIRTH CONTROL
     Dosage: UNK
     Dates: start: 20090420, end: 20101229
  5. ERRIN [Concomitant]
     Indication: MENSTRUAL CYCLE MANAGEMENT
  6. ZOLPIDEM [Concomitant]
     Dosage: 5 mg, UNK
  7. LISINOPRIL/HCTZ [Concomitant]
     Dosage: UNK UNK, QD
  8. ASPIRIN [Concomitant]
     Dosage: UNK UNK, QD
  9. ZOLOFT [Concomitant]
     Indication: ANXIETY
  10. ZOCOR [Concomitant]
     Indication: DYSLIPIDEMIA
  11. TOPROL XL [Concomitant]
  12. ATIVAN [Concomitant]
     Dosage: UNK UNK, PRN

REACTIONS (12)
  - Myocardial infarction [None]
  - Atelectasis [None]
  - Coronary artery thrombosis [None]
  - Arteriospasm coronary [None]
  - Hypertension [None]
  - Injury [None]
  - Dyspnoea [None]
  - Flank pain [None]
  - Chest pain [None]
  - Syncope [None]
  - Nausea [None]
  - Pain [None]
